FAERS Safety Report 6955780-8 (Version None)
Quarter: 2010Q3

REPORT INFORMATION
  Report Type: 
  Country: None (occurrence: None)
  Receive Date: 20100826
  Receipt Date: 20100826
  Transmission Date: 20110219
  Serious: Yes (Life-Threatening)
  Sender: FDA-Public Use
  Company Number: None

PATIENT
  Age: 49 Year
  Sex: Female
  Weight: 131.9967 kg

DRUGS (1)
  1. VIVILLE DOT .50 VIVELLE DOT [Suspect]
     Dosage: .50 EVERY 3 DAYS TOP
     Route: 061
     Dates: start: 20020701, end: 20080128

REACTIONS (1)
  - BREAST CANCER FEMALE [None]
